FAERS Safety Report 5814186-5 (Version None)
Quarter: 2008Q3

REPORT INFORMATION
  Report Type: 
  Country: None (occurrence: None)
  Receive Date: 20080715
  Receipt Date: 20080702
  Transmission Date: 20090109
  Serious: Yes (Hospitalization)
  Sender: FDA-Public Use
  Company Number: ALA_00061_2008

PATIENT
  Sex: Female
  Weight: 54.4316 kg

DRUGS (4)
  1. TRILYTE [Suspect]
     Indication: COLONOSCOPY
     Dosage: DF ORAL
     Route: 048
     Dates: start: 20080515, end: 20080515
  2. SINGULAIR /01362601/ (UNKNOWN) [Concomitant]
  3. LORAZEPAM [Concomitant]
  4. ALBUTEROL [Concomitant]

REACTIONS (4)
  - ASTHMA [None]
  - CARDIAC ENZYMES INCREASED [None]
  - LOSS OF CONSCIOUSNESS [None]
  - MYOCARDIAL INFARCTION [None]
